FAERS Safety Report 8563775-6 (Version None)
Quarter: 2012Q3

REPORT INFORMATION
  Report Type: 
  Country: None (occurrence: None)
  Receive Date: 20120803
  Receipt Date: 20120723
  Transmission Date: 20120928
  Serious: Yes (Death, Other)
  Sender: FDA-Public Use
  Company Number: US-BRISTOL-MYERS SQUIBB COMPANY-16795387

PATIENT
  Age: 82 Year
  Sex: Male

DRUGS (1)
  1. CETUXIMAB [Suspect]
     Indication: TONGUE NEOPLASM MALIGNANT STAGE UNSPECIFIED

REACTIONS (5)
  - OESOPHAGITIS [None]
  - MYELODYSPLASTIC SYNDROME [None]
  - MOUTH ULCERATION [None]
  - WEIGHT DECREASED [None]
  - SKIN ULCER [None]
